FAERS Safety Report 10027008 (Version 1)
Quarter: 2014Q1

REPORT INFORMATION
  Report Type: Spontaneous
  Country: US (occurrence: US)
  Receive Date: 20140321
  Receipt Date: 20140321
  Transmission Date: 20141002
  Serious: No
  Sender: FDA-Public Use
  Company Number: US-009507513-1402USA011546

PATIENT
  Age: 63 Year
  Sex: Female

DRUGS (9)
  1. PEGINTRON [Suspect]
     Indication: HEPATITIS C
     Dosage: 0.5 CC(ML), ONCE A WEEK, REDIPEN,CONCENTRATION ALSO REPORTED AS 120MCG/0.5CC
     Route: 058
     Dates: start: 20140221
  2. RIBASPHERE [Suspect]
     Dosage: 400 MG,AM AN PM (TWICE A DAY)
     Route: 048
     Dates: start: 20140221
  3. PRINIVIL [Concomitant]
     Dosage: 1 DOSE FORM (10MG TABLET), QD
     Route: 048
  4. ESTRADIOL [Concomitant]
     Dosage: 1 PATCH, QW,(CONCENTRATION 0.75MG)
  5. SOVALDI [Concomitant]
     Dosage: 1 DOSE FORF (400MG), QD
     Dates: start: 20140221
  6. CYMBALTA [Concomitant]
     Dosage: 1 DOSE FORM (60MG), QD
     Route: 048
  7. XANAX [Concomitant]
     Dosage: 1 DOSE FORM (0.25MG), PRN
     Route: 048
  8. PERCOCET [Concomitant]
     Indication: PAIN
     Dosage: 1 DOSE FORM, PRN, CONCENTRATION REPORTED AS 350/10 UNITS UNSPECIFIED
     Route: 048
  9. FENTANYL [Concomitant]
     Dosage: 1 PATCH, QW, CONCENTRATION REPORTED AS 75MG

REACTIONS (4)
  - Influenza like illness [Unknown]
  - Malaise [Unknown]
  - Vomiting [Unknown]
  - Pyrexia [Unknown]
